FAERS Safety Report 18162442 (Version 1)
Quarter: 2020Q3

REPORT INFORMATION
  Report Type: Spontaneous
  Country: JP (occurrence: JP)
  Receive Date: 20200818
  Receipt Date: 20200818
  Transmission Date: 20201103
  Serious: Yes (Other)
  Sender: FDA-Public Use
  Company Number: JP-AMGEN-JPNSP2019219251

PATIENT
  Sex: Male
  Weight: 2.07 kg

DRUGS (3)
  1. RINDERON #1 [Concomitant]
     Indication: PRODUCT USED FOR UNKNOWN INDICATION
     Dosage: 12 MILLIGRAM, TWO DOSES
     Route: 064
  2. G?LASTA [Suspect]
     Active Substance: PEGFILGRASTIM
     Indication: FEBRILE NEUTROPENIA
     Dosage: UNK
     Route: 064
  3. MEROPENEM. [Concomitant]
     Active Substance: MEROPENEM
     Indication: FEBRILE NEUTROPENIA
     Dosage: 1 GRAM, BID
     Route: 064

REACTIONS (3)
  - Exposure during pregnancy [Unknown]
  - Respiratory distress [Unknown]
  - Premature baby [Unknown]
